FAERS Safety Report 20665856 (Version 1)
Quarter: 2022Q2

REPORT INFORMATION
  Report Type: Spontaneous
  Country: FR (occurrence: FR)
  Receive Date: 20220402
  Receipt Date: 20220402
  Transmission Date: 20220721
  Serious: Yes (Hospitalization)
  Sender: FDA-Public Use
  Company Number: None

PATIENT
  Age: 29 Year
  Sex: Male

DRUGS (2)
  1. PREGABALIN [Suspect]
     Active Substance: PREGABALIN
     Dosage: QUANTITY NOT REPORTED, THERAPY END DATE : NASK
     Route: 065
     Dates: start: 2021
  2. CLONAZEPAM [Suspect]
     Active Substance: CLONAZEPAM
     Dosage: THERAPY START DATE : ASKU?THERAPY END DATE : NASK
     Route: 065

REACTIONS (3)
  - Coma [Recovered/Resolved]
  - Pneumonia aspiration [Recovering/Resolving]
  - Intentional product misuse [Unknown]

NARRATIVE: CASE EVENT DATE: 20210101
